FAERS Safety Report 17447343 (Version 1)
Quarter: 2020Q1

REPORT INFORMATION
  Report Type: Spontaneous
  Country: TH (occurrence: TH)
  Receive Date: 20200221
  Receipt Date: 20200221
  Transmission Date: 20200409
  Serious: Yes (Other)
  Sender: FDA-Public Use
  Company Number: NVSC2020TH043887

PATIENT
  Age: 47 Year
  Sex: Female

DRUGS (5)
  1. LEVOTHYROXINE. [Concomitant]
     Active Substance: LEVOTHYROXINE
     Indication: HYPOTHYROIDISM
     Dosage: UNK
     Route: 065
  2. DESMOPRESSIN [Concomitant]
     Active Substance: DESMOPRESSIN
     Indication: HYPOGONADISM
     Dosage: UNK
     Route: 048
  3. SANDOSTATIN LAR DEPOT [Suspect]
     Active Substance: OCTREOTIDE ACETATE
     Dosage: UNK (DECRESAE FREQUENCY)
     Route: 065
  4. PREDNISOLONE. [Concomitant]
     Active Substance: PREDNISOLONE
     Indication: ADRENAL INSUFFICIENCY
     Dosage: UNK
     Route: 065
  5. SANDOSTATIN LAR DEPOT [Suspect]
     Active Substance: OCTREOTIDE ACETATE
     Indication: BREAST CANCER
     Dosage: 20 MG, QMO
     Route: 065
     Dates: start: 2017, end: 2018

REACTIONS (4)
  - Insulin-like growth factor decreased [Recovering/Resolving]
  - Bradycardia [Recovering/Resolving]
  - Sinus bradycardia [Recovering/Resolving]
  - Ventricular extrasystoles [Unknown]
